FAERS Safety Report 6239383-9 (Version None)
Quarter: 2009Q2

REPORT INFORMATION
  Report Type: 
  Country: None (occurrence: None)
  Receive Date: 20090622
  Receipt Date: 20090617
  Transmission Date: 20091009
  Serious: Yes (Other)
  Sender: FDA-Public Use
  Company Number: TW-ABBOTT-09P-153-0579321-00

PATIENT
  Sex: Female
  Weight: 57 kg

DRUGS (2)
  1. REDUCTIL 10MG [Suspect]
     Indication: WEIGHT CONTROL
     Route: 048
     Dates: start: 20090401, end: 20090401
  2. REDUCTIL 10MG [Suspect]
     Route: 048
     Dates: start: 20090610

REACTIONS (1)
  - ABORTION INDUCED [None]
